FAERS Safety Report 8111701-6 (Version None)
Quarter: 2012Q1

REPORT INFORMATION
  Report Type: 
  Country: None (occurrence: None)
  Receive Date: 20120203
  Receipt Date: 20120119
  Transmission Date: 20120608
  Serious: Yes (Other)
  Sender: FDA-Public Use
  Company Number: US-JNJFOC-20120108804

PATIENT
  Sex: Female

DRUGS (3)
  1. CETIRIZINE HCL [Suspect]
     Indication: COUGH
     Route: 065
     Dates: start: 20111114
  2. VITAMIN [Concomitant]
     Indication: PRODUCT USED FOR UNKNOWN INDICATION
     Route: 065
  3. CETIRIZINE HCL [Suspect]
     Indication: NASAL CONGESTION
     Route: 065
     Dates: start: 20111114

REACTIONS (3)
  - PYREXIA [None]
  - OFF LABEL USE [None]
  - PARTIAL SEIZURES [None]
